FAERS Safety Report 5946755-6 (Version None)
Quarter: 2008Q4

REPORT INFORMATION
  Report Type: 
  Country: None (occurrence: None)
  Receive Date: 20081110
  Receipt Date: 20081103
  Transmission Date: 20090506
  Serious: Yes (Hospitalization, Other)
  Sender: FDA-Public Use
  Company Number: US-BIOGENIDEC-2008BI028341

PATIENT
  Sex: Female
  Weight: 70 kg

DRUGS (2)
  1. AVONEX [Suspect]
     Indication: MULTIPLE SCLEROSIS
     Route: 030
     Dates: start: 20011115, end: 20030101
  2. AVONEX [Suspect]
     Route: 030
     Dates: start: 20030101

REACTIONS (8)
  - BLOOD CHOLESTEROL INCREASED [None]
  - BREAST CANCER [None]
  - CYSTITIS [None]
  - EATING DISORDER [None]
  - GASTROINTESTINAL DISORDER [None]
  - INSOMNIA [None]
  - MULTIPLE SCLEROSIS RELAPSE [None]
  - URINARY INCONTINENCE [None]
